FAERS Safety Report 5772493-9 (Version None)
Quarter: 2008Q2

REPORT INFORMATION
  Report Type: 
  Country: None (occurrence: None)
  Receive Date: 20080613
  Receipt Date: 20080611
  Transmission Date: 20081010
  Serious: Yes (Other)
  Sender: FDA-Public Use
  Company Number: US-GENENTECH-261377

PATIENT
  Age: 64 Year
  Sex: Male

DRUGS (2)
  1. RAPTIVA [Suspect]
     Indication: PSORIASIS
     Dosage: 1 MG/KG, 1/WEEK
     Dates: start: 20080101
  2. RAPTIVA [Suspect]
     Dosage: UNK, UNK
     Dates: start: 20080501, end: 20080528

REACTIONS (2)
  - MUSCULAR WEAKNESS [None]
  - MYALGIA [None]
